FAERS Safety Report 16016421 (Version 1)
Quarter: 2019Q1

REPORT INFORMATION
  Report Type: Spontaneous
  Country: CN (occurrence: CN)
  Receive Date: 20190228
  Receipt Date: 20190228
  Transmission Date: 20190418
  Serious: Yes (Other)
  Sender: FDA-Public Use
  Company Number: CN-ROCHE-2263939

PATIENT
  Age: 55 Year
  Sex: Female

DRUGS (26)
  1. CYCLOPHOSPHAMIDE. [Concomitant]
     Active Substance: CYCLOPHOSPHAMIDE
     Indication: B-CELL LYMPHOMA
     Dosage: D1
     Route: 065
     Dates: start: 20130830
  2. PIRARUBICIN [Concomitant]
     Active Substance: PIRARUBICIN
     Indication: B-CELL LYMPHOMA
     Dosage: D1
     Route: 065
     Dates: start: 20130830
  3. DEXAMETHASONE. [Concomitant]
     Active Substance: DEXAMETHASONE
     Dosage: D1-5
     Route: 065
     Dates: start: 20151120
  4. RITUXIMAB. [Suspect]
     Active Substance: RITUXIMAB
     Indication: B-CELL LYMPHOMA
     Dosage: D0
     Route: 065
     Dates: start: 20130830
  5. RITUXIMAB. [Suspect]
     Active Substance: RITUXIMAB
     Route: 065
     Dates: start: 20140320
  6. RITUXIMAB. [Suspect]
     Active Substance: RITUXIMAB
     Dosage: D0
     Route: 065
     Dates: start: 20150723
  7. DEXAMETHASONE. [Concomitant]
     Active Substance: DEXAMETHASONE
     Indication: B-CELL LYMPHOMA
     Dosage: D1-4
     Route: 065
     Dates: start: 20150825
  8. METHOTREXATE. [Concomitant]
     Active Substance: METHOTREXATE
     Indication: B-CELL LYMPHOMA
     Dosage: D1
     Route: 065
     Dates: start: 20150825
  9. IFEX [Concomitant]
     Active Substance: IFOSFAMIDE
     Indication: B-CELL LYMPHOMA
     Dosage: D1-3
     Route: 065
     Dates: start: 20150825
  10. PREDNISONE. [Concomitant]
     Active Substance: PREDNISONE
     Indication: B-CELL LYMPHOMA
     Dosage: BID D1-5
     Route: 065
     Dates: start: 20130830
  11. FLUDARABINE [Concomitant]
     Active Substance: FLUDARABINE PHOSPHATE
     Indication: B-CELL LYMPHOMA
     Dosage: D1-3
     Route: 065
     Dates: start: 20131129
  12. LENALIDOMIDE [Concomitant]
     Active Substance: LENALIDOMIDE
     Indication: B-CELL LYMPHOMA
     Dosage: D1-14
     Route: 065
     Dates: start: 20151120
  13. DEXAMETHASONE. [Concomitant]
     Active Substance: DEXAMETHASONE
     Dosage: ONCE EVERY 3 MONTHS
     Route: 065
     Dates: start: 20160321
  14. CISPLATIN. [Concomitant]
     Active Substance: CISPLATIN
     Indication: B-CELL LYMPHOMA
     Route: 042
     Dates: start: 20150825
  15. VINDESINE [Concomitant]
     Active Substance: VINDESINE
     Indication: B-CELL LYMPHOMA
     Dosage: D1
     Route: 065
     Dates: start: 20130830
  16. GEMCITABINE [Concomitant]
     Active Substance: GEMCITABINE\GEMCITABINE HYDROCHLORIDE
     Indication: B-CELL LYMPHOMA
     Dosage: D1, 8
     Route: 065
     Dates: start: 20150723
  17. LENALIDOMIDE [Concomitant]
     Active Substance: LENALIDOMIDE
     Dosage: ONCE EVERY 3 MONTHS
     Route: 065
     Dates: start: 20160321
  18. CYCLOPHOSPHAMIDE. [Concomitant]
     Active Substance: CYCLOPHOSPHAMIDE
     Dosage: D1
     Route: 065
     Dates: start: 20151120
  19. CYCLOPHOSPHAMIDE. [Concomitant]
     Active Substance: CYCLOPHOSPHAMIDE
     Dosage: ONCE EVERY 3 MONTHS
     Route: 065
     Dates: start: 20160321
  20. OXALIPLATIN. [Concomitant]
     Active Substance: OXALIPLATIN
     Indication: B-CELL LYMPHOMA
     Dosage: D1
     Route: 065
     Dates: start: 20150723
  21. ETOPOSIDE. [Concomitant]
     Active Substance: ETOPOSIDE
     Indication: B-CELL LYMPHOMA
     Dosage: D1-3
     Route: 065
     Dates: start: 20150825
  22. CISPLATIN. [Concomitant]
     Active Substance: CISPLATIN
     Route: 042
     Dates: start: 20151008
  23. RITUXIMAB. [Suspect]
     Active Substance: RITUXIMAB
     Dosage: D0
     Route: 065
     Dates: start: 20131129
  24. RITUXIMAB. [Suspect]
     Active Substance: RITUXIMAB
     Dosage: D0
     Route: 065
     Dates: start: 20150825
  25. CYCLOPHOSPHAMIDE. [Concomitant]
     Active Substance: CYCLOPHOSPHAMIDE
     Dosage: D1-3
     Route: 065
     Dates: start: 20131129
  26. PEGASPARGASE [Concomitant]
     Active Substance: PEGASPARGASE
     Indication: B-CELL LYMPHOMA
     Dosage: D2, 3750U
     Route: 065
     Dates: start: 20150825

REACTIONS (4)
  - Herpes zoster [Unknown]
  - Pleural effusion [Unknown]
  - Lung infection [Unknown]
  - Ascites [Unknown]

NARRATIVE: CASE EVENT DATE: 20150720
